FAERS Safety Report 10881916 (Version 1)
Quarter: 2015Q1

REPORT INFORMATION
  Report Type: Spontaneous
  Country: US (occurrence: None)
  Receive Date: 20150225
  Receipt Date: 20150225
  Transmission Date: 20150721
  Serious: No
  Sender: FDA-Public Use
  Company Number: None

PATIENT
  Age: 31 Year
  Sex: Female
  Weight: 79.83 kg

DRUGS (1)
  1. MIRENA [Suspect]
     Active Substance: LEVONORGESTREL

REACTIONS (7)
  - Dizziness [None]
  - Emotional disorder [None]
  - Suicidal ideation [None]
  - Anxiety [None]
  - Nausea [None]
  - Headache [None]
  - Malaise [None]

NARRATIVE: CASE EVENT DATE: 20150223
